FAERS Safety Report 20175925 (Version 3)
Quarter: 2022Q1

REPORT INFORMATION
  Report Type: Spontaneous
  Country: US (occurrence: US)
  Receive Date: 20211213
  Receipt Date: 20220107
  Transmission Date: 20220423
  Serious: Yes (Other)
  Sender: FDA-Public Use
  Company Number: US-PFIZER INC-202101732357

PATIENT
  Age: 58 Year
  Sex: Female

DRUGS (5)
  1. XELJANZ [Suspect]
     Active Substance: TOFACITINIB CITRATE
     Indication: Rheumatoid arthritis
     Dosage: 5 MG, 2X/DAY
     Route: 048
     Dates: start: 20210901, end: 20211121
  2. HYDROXYCHLOROQUINE [Concomitant]
     Active Substance: HYDROXYCHLOROQUINE
     Dosage: UNK
  3. FOLIC ACID [Concomitant]
     Active Substance: FOLIC ACID
     Dosage: UNK
  4. METHOTREXATE SODIUM [Concomitant]
     Active Substance: METHOTREXATE SODIUM
     Dosage: UNK
  5. VITAMIN D3 [Concomitant]
     Active Substance: CHOLECALCIFEROL
     Dosage: UNK

REACTIONS (17)
  - Osteomyelitis [Unknown]
  - Bipolar disorder [Unknown]
  - Therapeutic product effect incomplete [Unknown]
  - Intentional underdose [Unknown]
  - Product dose omission issue [Unknown]
  - Sinusitis [Unknown]
  - Ear infection [Unknown]
  - Pharyngitis [Unknown]
  - Gingivitis [Unknown]
  - Aphonia [Unknown]
  - Fatigue [Unknown]
  - Pain in extremity [Unknown]
  - Nausea [Unknown]
  - Malaise [Unknown]
  - Pruritus [Unknown]
  - Discouragement [Unknown]
  - Depression [Unknown]

NARRATIVE: CASE EVENT DATE: 20210101
